FAERS Safety Report 7336288-7 (Version None)
Quarter: 2011Q1

REPORT INFORMATION
  Report Type: 
  Country: None (occurrence: None)
  Receive Date: 20110224
  Receipt Date: 20110209
  Transmission Date: 20110831
  Serious: Yes (Other)
  Sender: FDA-Public Use
  Company Number: 025790

PATIENT
  Sex: Female

DRUGS (7)
  1. KEPPRA [Suspect]
     Indication: EPILEPSY
     Dosage: (500 MG BID ORAL)
     Route: 048
     Dates: start: 20101214
  2. KEPPRA [Suspect]
     Indication: ENCEPHALITIS
     Dosage: (500 MG BID ORAL)
     Route: 048
     Dates: start: 20101214
  3. PRIMIDONE [Concomitant]
  4. MAGLAX [Concomitant]
  5. LAMICTAL [Concomitant]
  6. VEGETAMIN A [Concomitant]
  7. IMPROMEN /00568801/ [Concomitant]

REACTIONS (5)
  - DRUG EXPOSURE DURING PREGNANCY [None]
  - ABORTION INDUCED [None]
  - SOCIAL PROBLEM [None]
  - ECONOMIC PROBLEM [None]
  - PREGNANCY [None]
